FAERS Safety Report 6076382-4 (Version None)
Quarter: 2009Q1

REPORT INFORMATION
  Report Type: 
  Country: None (occurrence: None)
  Receive Date: 20090210
  Receipt Date: 20090206
  Transmission Date: 20090719
  Serious: Yes (Hospitalization)
  Sender: FDA-Public Use
  Company Number: 2009S1001131

PATIENT
  Age: 58 Year
  Sex: Female

DRUGS (7)
  1. PERGOLIDE MESYLATE [Suspect]
     Indication: PARKINSON'S DISEASE
     Dosage: 4.75 MG;DAILY;ORAL  ; 6 MG;DAILY;ORAL ; 8 MG;DAILY;ORAL
     Route: 048
  2. CITALOPRAM HYDROBROMIDE [Suspect]
     Indication: ANXIETY DISORDER
     Dosage: 10 MG;DAILY;ORAL ; 20 MG;DAILY;ORAL
     Route: 048
  3. AMANTADINE HCL [Concomitant]
  4. SELEGILINE [Concomitant]
  5. LEVODOPA [Concomitant]
  6. OXAZEPAM [Concomitant]
  7. ZOLPIDEM [Concomitant]

REACTIONS (9)
  - ANXIETY [None]
  - AORTIC VALVE INCOMPETENCE [None]
  - CARDIAC FAILURE [None]
  - DYSPNOEA [None]
  - DYSTONIA [None]
  - MITRAL VALVE INCOMPETENCE [None]
  - OEDEMA PERIPHERAL [None]
  - TRICUSPID VALVE DISEASE [None]
  - VENTRICULAR HYPERTROPHY [None]
